FAERS Safety Report 6807377-8 (Version None)
Quarter: 2010Q2

REPORT INFORMATION
  Report Type: 
  Country: None (occurrence: None)
  Receive Date: 20100629
  Receipt Date: 20081103
  Transmission Date: 20101027
  Serious: No
  Sender: FDA-Public Use
  Company Number: US-PFIZER INC-2008073162

PATIENT
  Sex: Male
  Weight: 82.727 kg

DRUGS (4)
  1. VIAGRA [Suspect]
     Indication: ERECTILE DYSFUNCTION
     Route: 048
     Dates: start: 20080801
  2. SEREVENT [Concomitant]
     Indication: ASTHMA
  3. VALPROIC ACID [Concomitant]
  4. ZYPREXA [Concomitant]
     Indication: BIPOLAR DISORDER

REACTIONS (1)
  - EJACULATION FAILURE [None]
